FAERS Safety Report 20215686 (Version 1)
Quarter: 2021Q4

REPORT INFORMATION
  Report Type: Spontaneous
  Country: CN (occurrence: CN)
  Receive Date: 20211222
  Receipt Date: 20211222
  Transmission Date: 20220303
  Serious: Yes (Other)
  Sender: FDA-Public Use
  Company Number: CN-ABBVIE-21K-035-4208207-00

PATIENT
  Age: 48 Year
  Sex: Male

DRUGS (2)
  1. VALPROATE SODIUM [Suspect]
     Active Substance: VALPROATE SODIUM
     Indication: Epilepsy
     Dosage: 1 TABLET?333.3/145 MG
     Route: 048
     Dates: start: 2017
  2. VALPROATE SODIUM [Suspect]
     Active Substance: VALPROATE SODIUM
     Dosage: 1 TABLET IN THE MORNING TABLETS IN THE AFTERNOON;?333.3/145 MG
     Route: 048

REACTIONS (4)
  - Epilepsy [Recovered/Resolved]
  - Disease recurrence [Recovered/Resolved]
  - Musculoskeletal stiffness [Recovered/Resolved]
  - Wrong technique in product usage process [Unknown]

NARRATIVE: CASE EVENT DATE: 20180601
